FAERS Safety Report 6902231-5 (Version None)
Quarter: 2010Q3

REPORT INFORMATION
  Report Type: 
  Country: None (occurrence: None)
  Receive Date: 20100803
  Receipt Date: 20080429
  Transmission Date: 20110219
  Serious: Yes (Other)
  Sender: FDA-Public Use
  Company Number: US-PFIZER INC-2008038464

PATIENT
  Sex: Female
  Weight: 102.1 kg

DRUGS (3)
  1. LYRICA [Suspect]
     Indication: NEUROPATHY PERIPHERAL
     Route: 048
     Dates: start: 20071001
  2. METFORMIN HCL [Concomitant]
     Route: 048
  3. REQUIP [Concomitant]
     Route: 048

REACTIONS (1)
  - WEIGHT INCREASED [None]
